FAERS Safety Report 11445174 (Version 1)
Quarter: 2015Q3

REPORT INFORMATION
  Report Type: Spontaneous
  Country: US (occurrence: None)
  Receive Date: 20150901
  Receipt Date: 20150901
  Transmission Date: 20151125
  Serious: No
  Sender: FDA-Public Use
  Company Number: None

PATIENT
  Sex: Female

DRUGS (7)
  1. OXYCODONE [Concomitant]
     Active Substance: OXYCODONE
  2. CLONAZEPAM. [Concomitant]
     Active Substance: CLONAZEPAM
  3. AFINITOR [Suspect]
     Active Substance: EVEROLIMUS
     Indication: NEOPLASM MALIGNANT
     Route: 048
  4. HYDROCODONE [Concomitant]
     Active Substance: HYDROCODONE
  5. VITAMIN D3 [Concomitant]
     Active Substance: CHOLECALCIFEROL
  6. ALEVE [Concomitant]
     Active Substance: NAPROXEN SODIUM
  7. EXEMESTANE. [Concomitant]
     Active Substance: EXEMESTANE

REACTIONS (6)
  - Stomatitis [None]
  - Skin exfoliation [None]
  - Decreased appetite [None]
  - Pruritus [None]
  - Skin disorder [None]
  - Weight decreased [None]
